FAERS Safety Report 7235670-6 (Version None)
Quarter: 2011Q1

REPORT INFORMATION
  Report Type: 
  Country: None (occurrence: None)
  Receive Date: 20110110
  Receipt Date: 20101222
  Transmission Date: 20110831
  Serious: Yes (Hospitalization, Other)
  Sender: FDA-Public Use
  Company Number: ALA_01172_2010

PATIENT
  Sex: Male

DRUGS (60)
  1. LANSOPRAZOLE [Concomitant]
  2. OMEPRAZOLE [Concomitant]
  3. PIOGLITAZONE [Concomitant]
  4. LISINOPRIL [Concomitant]
  5. ATORVASTATIN CALCIUM [Concomitant]
  6. REGULAR INSULIN [Concomitant]
  7. CARBIDOPA AND LEVODOPA [Concomitant]
  8. TOPIRAMATE [Concomitant]
  9. NITROFURANTOI [Concomitant]
  10. METHOCARBAMOL [Concomitant]
  11. FLUTICASONE PROPIONATE [Concomitant]
  12. HYDROCODONE BITARTRATE AND ACETAMINOPHEN [Concomitant]
  13. DEXTROSE [Concomitant]
  14. VERAPAMIL [Concomitant]
  15. GEMFIBROZIL [Concomitant]
  16. COLON ELECTROLYTE LAVAGE POWDER [Concomitant]
  17. NIACIN [Concomitant]
  18. MAGNESIUM OXIDE [Concomitant]
  19. GLYBURIDE [Concomitant]
  20. EZETIMIBE [Concomitant]
  21. ROSIGLITAZONE MALEATE [Concomitant]
  22. GENTAMICIN [Concomitant]
  23. PROMETHAZINE [Concomitant]
  24. CEFTRIAXONE [Concomitant]
  25. CLOTRIMAZOLE [Concomitant]
  26. MILK OF MAGNESIA TAB [Concomitant]
  27. IPRATROPIUM BROMIDE [Concomitant]
  28. AMOXICILLIN [Concomitant]
  29. ROSUVASTATIN [Concomitant]
  30. HYDROCHLOROTHIAZIDE [Concomitant]
  31. HOSCYAMINE [Concomitant]
  32. MEPERIDINE HCL [Concomitant]
  33. CEPHALEXIN [Concomitant]
  34. TRAZODONE HCL [Concomitant]
  35. BUSPIRONE [Concomitant]
  36. AMLODIPINE BESYLATE [Concomitant]
  37. NORMAL SALINE [Concomitant]
  38. FOSINOPRIL SODIUM [Concomitant]
  39. SERTRALINE [Concomitant]
  40. PIROXICAM [Concomitant]
  41. DOCUSATE SODIUM [Concomitant]
  42. SIMETHICONE [Concomitant]
  43. SODIUM PHOSPHATES [Concomitant]
  44. LORAZEPAM [Concomitant]
  45. FEXOFENADINE HCL [Concomitant]
  46. METFORMIN HCL [Concomitant]
  47. LISINOPRIL AND HYDROCHLOROTHIAZIDE [Concomitant]
  48. CIPROFLOXACIN [Concomitant]
  49. GUAIFENESIN [Concomitant]
  50. REGLAN [Suspect]
     Indication: GASTROINTESTINAL DISORDER
     Dosage: (10 MG QID  ORAL), (10 MG BID ORAL)
     Route: 048
     Dates: start: 20050101, end: 20090101
  51. REGLAN [Suspect]
     Indication: GASTROINTESTINAL DISORDER
     Dosage: (10 MG QID  ORAL), (10 MG BID ORAL)
     Route: 048
     Dates: start: 20000501, end: 20050101
  52. FLUOXETINE HCL [Concomitant]
  53. AMANTADINE HCL [Concomitant]
  54. RISEDRONATE SODIUM [Concomitant]
  55. LORATADINE [Concomitant]
  56. SULFAMETHOXAZOLE AND TRIMETHOPRIM [Concomitant]
  57. FELODIPINE [Concomitant]
  58. CLOTRIMAZOLE [Concomitant]
  59. ASPIRIN [Concomitant]
  60. MAGNESIUM CITRATE [Concomitant]

REACTIONS (16)
  - MASKED FACIES [None]
  - BRADYKINESIA [None]
  - MUSCLE RIGIDITY [None]
  - STARING [None]
  - MOVEMENT DISORDER [None]
  - ECONOMIC PROBLEM [None]
  - GAIT DISTURBANCE [None]
  - MULTIPLE SCLEROSIS RELAPSE [None]
  - EMOTIONAL DISORDER [None]
  - BALANCE DISORDER [None]
  - APHASIA [None]
  - INJURY [None]
  - DIABETIC AUTONOMIC NEUROPATHY [None]
  - TARDIVE DYSKINESIA [None]
  - EXTRAPYRAMIDAL DISORDER [None]
  - RESTLESS LEGS SYNDROME [None]
